FAERS Safety Report 20749721 (Version 2)
Quarter: 2022Q2

REPORT INFORMATION
  Report Type: Spontaneous
  Country: JP (occurrence: JP)
  Receive Date: 20220426
  Receipt Date: 20220616
  Transmission Date: 20220721
  Serious: Yes (Death, Other)
  Sender: FDA-Public Use
  Company Number: JP-TAKEDA-2022TJP042040

PATIENT

DRUGS (1)
  1. ZEJULA [Suspect]
     Active Substance: NIRAPARIB
     Indication: Ovarian cancer stage III
     Dosage: 200 MILLIGRAM, QD
     Route: 048
     Dates: start: 20201209, end: 20210415

REACTIONS (2)
  - Ovarian cancer stage III [Fatal]
  - Disease progression [Fatal]

NARRATIVE: CASE EVENT DATE: 20210513
